FAERS Safety Report 6671069-9 (Version None)
Quarter: 2010Q2

REPORT INFORMATION
  Report Type: 
  Country: None (occurrence: None)
  Receive Date: 20100407
  Receipt Date: 20100329
  Transmission Date: 20101027
  Serious: Yes (Hospitalization)
  Sender: FDA-Public Use
  Company Number: US-ASTRAZENECA-2010SE14182

PATIENT
  Age: 55 Year
  Sex: Female

DRUGS (3)
  1. SEROQUEL XR [Suspect]
     Route: 048
  2. TRILIFON [Concomitant]
  3. HALDOL [Concomitant]
     Route: 065

REACTIONS (1)
  - PSYCHOTIC BEHAVIOUR [None]
